FAERS Safety Report 4663456-5 (Version None)
Quarter: 2005Q2

REPORT INFORMATION
  Report Type: 
  Country: None (occurrence: None)
  Receive Date: 20050513
  Receipt Date: 20050502
  Transmission Date: 20051028
  Serious: Yes (Other)
  Sender: FDA-Public Use
  Company Number: 2005057894

PATIENT
  Age: 15 Month
  Sex: Male

DRUGS (1)
  1. ZITHROMAX [Suspect]
     Indication: OTITIS MEDIA
     Dosage: 1 IN 1 D, ORAL
     Route: 048
     Dates: start: 20031229, end: 20040103

REACTIONS (2)
  - DEAFNESS NEUROSENSORY [None]
  - SPEECH DISORDER DEVELOPMENTAL [None]
